FAERS Safety Report 10599170 (Version 1)
Quarter: 2014Q4

REPORT INFORMATION
  Report Type: Spontaneous
  Country: IN (occurrence: None)
  Receive Date: 20141119
  Receipt Date: 20141119
  Transmission Date: 20150529
  Serious: Yes (Hospitalization)
  Sender: FDA-Public Use
  Company Number: UCM201411-000191

PATIENT
  Age: 35 Year
  Sex: Female

DRUGS (2)
  1. ATENOLOL. [Suspect]
     Active Substance: ATENOLOL
     Dosage: 100 TABLETS
  2. AMLODIPINE [Suspect]
     Active Substance: AMLODIPINE BESYLATE
     Dosage: 100 TABLET

REACTIONS (15)
  - Suicide attempt [None]
  - Blood creatinine increased [None]
  - Haemoglobin decreased [None]
  - Tachypnoea [None]
  - Blood glucose increased [None]
  - Metabolic acidosis [None]
  - Hypotension [None]
  - Blood urea increased [None]
  - Tachycardia [None]
  - Intentional overdose [None]
  - Atrioventricular block second degree [None]
  - Depressed level of consciousness [None]
  - Blood sodium decreased [None]
  - Coma scale abnormal [None]
  - Continuous haemodiafiltration [None]
